FAERS Safety Report 9406342 (Version 2)
Quarter: 2013Q3

REPORT INFORMATION
  Report Type: Spontaneous
  Country: DK (occurrence: DK)
  Receive Date: 20130717
  Receipt Date: 20130723
  Transmission Date: 20140515
  Serious: Yes (Death, Hospitalization)
  Sender: FDA-Public Use
  Company Number: DK-ROCHE-1247861

PATIENT
  Age: 62 Year
  Sex: Female

DRUGS (12)
  1. AVASTIN [Suspect]
     Indication: METASTASES TO LIVER
     Route: 041
     Dates: start: 20130312, end: 20130423
  2. AVASTIN [Suspect]
     Indication: METASTASES TO LUNG
  3. AVASTIN [Suspect]
     Indication: DISEASE RECURRENCE
  4. 5-FLUOROURACIL [Concomitant]
     Indication: METASTASES TO LIVER
     Route: 042
     Dates: start: 20130226
  5. 5-FLUOROURACIL [Concomitant]
     Indication: METASTASES TO LUNG
  6. 5-FLUOROURACIL [Concomitant]
     Indication: DISEASE RECURRENCE
  7. IRINOTECAN [Concomitant]
     Indication: METASTASES TO LIVER
     Route: 042
     Dates: start: 20130226
  8. IRINOTECAN [Concomitant]
     Indication: METASTASES TO LUNG
  9. IRINOTECAN [Concomitant]
     Indication: DISEASE RECURRENCE
  10. FOLINIC ACID [Concomitant]
     Indication: METASTASES TO LIVER
     Route: 042
     Dates: start: 20130226
  11. FOLINIC ACID [Concomitant]
     Indication: METASTASES TO LUNG
  12. FOLINIC ACID [Concomitant]
     Indication: DISEASE RECURRENCE

REACTIONS (3)
  - Enterocolonic fistula [Fatal]
  - Female genital tract fistula [Fatal]
  - Urosepsis [Fatal]
